FAERS Safety Report 5585358-2 (Version None)
Quarter: 2008Q1

REPORT INFORMATION
  Report Type: 
  Country: None (occurrence: None)
  Receive Date: 20080104
  Receipt Date: 20080104
  Transmission Date: 20080703
  Serious: Yes (Death)
  Sender: FDA-Public Use
  Company Number: None

PATIENT
  Age: 37 Year
  Sex: Female
  Weight: 66 kg

DRUGS (17)
  1. PROPOFOL [Suspect]
     Indication: SEDATION
     Dosage: 25-180 MCG/KG/HR
     Dates: start: 20071011, end: 20071013
  2. SENNA [Concomitant]
  3. SIMVASTATIN [Concomitant]
  4. BISACODYL [Concomitant]
  5. KEPPRA [Concomitant]
  6. NIMODIPINE [Concomitant]
  7. PREVACID [Concomitant]
  8. HEPARIN [Concomitant]
  9. CEFEPIME [Concomitant]
  10. VANCOMYCIN [Concomitant]
  11. FLAGYL [Concomitant]
  12. HYDROCORTISONE [Concomitant]
  13. CASPOFUNGIN [Concomitant]
  14. FENTANYL [Concomitant]
  15. NOREPI [Concomitant]
  16. VASOPRESSIN [Concomitant]
  17. INSULIN [Concomitant]

REACTIONS (8)
  - ANEURYSM RUPTURED [None]
  - BLOOD CREATININE INCREASED [None]
  - BLOOD LACTIC ACID INCREASED [None]
  - CARDIAC ARREST [None]
  - HYPOTENSION [None]
  - OPERATIVE HAEMORRHAGE [None]
  - RHABDOMYOLYSIS [None]
  - VENTRICULAR TACHYCARDIA [None]
